FAERS Safety Report 21548401 (Version 2)
Quarter: 2022Q4

REPORT INFORMATION
  Report Type: Report from Study
  Country: US (occurrence: US)
  Receive Date: 20221103
  Receipt Date: 20221221
  Transmission Date: 20230112
  Serious: Yes (Hospitalization)
  Sender: FDA-Public Use
  Company Number: US-SANOFI-01346450

PATIENT
  Age: 70 Year
  Sex: Male
  Weight: 61 kg

DRUGS (2)
  1. DUPILUMAB [Suspect]
     Active Substance: DUPILUMAB
     Indication: Asthma
     Dosage: 600 MG, 1X
     Route: 058
     Dates: start: 20210806, end: 20210806
  2. DUPILUMAB [Suspect]
     Active Substance: DUPILUMAB
     Dosage: 300 MG, QOW
     Route: 058
     Dates: end: 202109

REACTIONS (10)
  - Hypertension [Unknown]
  - Asthenia [Unknown]
  - Malaise [Unknown]
  - Nasopharyngitis [Unknown]
  - Nasal polyps [Unknown]
  - Anosmia [Unknown]
  - Ageusia [Unknown]
  - Asthma [Unknown]
  - Drug ineffective [Unknown]
  - Drug intolerance [Unknown]
